FAERS Safety Report 16627324 (Version 3)
Quarter: 2020Q1

REPORT INFORMATION
  Report Type: Spontaneous
  Country: US (occurrence: US)
  Receive Date: 20190724
  Receipt Date: 20200203
  Transmission Date: 20200409
  Serious: Yes (Hospitalization)
  Sender: FDA-Public Use
  Company Number: US-BIOCODEX SA-201900779

PATIENT

DRUGS (6)
  1. DIACOMIT [Suspect]
     Active Substance: STIRIPENTOL
     Indication: SEVERE MYOCLONIC EPILEPSY OF INFANCY
     Dosage: 500MG OF DIACOMIT WAS DISSOLVED IN 20ML OF WATER. THE PATIENT TOOK 12ML (300MG) TWICE A DAY.
     Route: 048
     Dates: start: 20190530
  2. ONFI [Concomitant]
     Active Substance: CLOBAZAM
     Indication: SEVERE MYOCLONIC EPILEPSY OF INFANCY
     Route: 065
  3. KEPPRE [Concomitant]
     Indication: PRODUCT USED FOR UNKNOWN INDICATION
     Route: 065
  4. BRIVIACT [Concomitant]
     Active Substance: BRIVARACETAM
     Indication: PRODUCT USED FOR UNKNOWN INDICATION
     Route: 065
  5. DIACOMIT [Suspect]
     Active Substance: STIRIPENTOL
     Dosage: 16ML TWICE DAILY.
     Route: 048
     Dates: start: 20200121
  6. DIACOMIT [Suspect]
     Active Substance: STIRIPENTOL
     Dosage: 15ML TWICE DAILY.
     Route: 048

REACTIONS (1)
  - Seizure [Unknown]
